FAERS Safety Report 13917886 (Version 1)
Quarter: 2017Q3

REPORT INFORMATION
  Report Type: Spontaneous
  Country: GB (occurrence: GB)
  Receive Date: 20170829
  Receipt Date: 20170829
  Transmission Date: 20171127
  Serious: Yes (Other)
  Sender: FDA-Public Use
  Company Number: PHFR2017GB006995

PATIENT
  Age: 75 Year
  Sex: Female

DRUGS (1)
  1. DICLOFENAC [Suspect]
     Active Substance: DICLOFENAC
     Indication: PAIN
     Dosage: 100 MG, QHS AT A BED TIME
     Route: 067
     Dates: start: 20170608, end: 20170608

REACTIONS (3)
  - Administration site pain [Recovered/Resolved]
  - Incorrect route of drug administration [Unknown]
  - Vulvovaginal discomfort [Recovered/Resolved]

NARRATIVE: CASE EVENT DATE: 20170608
